FAERS Safety Report 8276233-3 (Version None)
Quarter: 2012Q2

REPORT INFORMATION
  Report Type: 
  Country: None (occurrence: None)
  Receive Date: 20120409
  Receipt Date: 20120402
  Transmission Date: 20120825
  Serious: Yes (Other)
  Sender: FDA-Public Use
  Company Number: ACO_29931_2012

PATIENT
  Age: 67 Year
  Sex: Female

DRUGS (8)
  1. AMITRIPTYLINE HCL [Concomitant]
  2. ATENOLOL [Concomitant]
  3. ASPIRIN (ACETYLSALICYLIC ACID), 81 MG [Concomitant]
  4. AMPYRA [Suspect]
     Indication: GAIT DISTURBANCE
     Dosage: 10 MG, Q 12 HRS, ORAL
     Route: 048
     Dates: start: 20120323
  5. LIPITOR [Concomitant]
  6. BETASERON [Concomitant]
  7. CALCIUM CARBONATE [Concomitant]
  8. FISH OIL (FISH OIL) [Concomitant]

REACTIONS (1)
  - ANKLE FRACTURE [None]
